FAERS Safety Report 24281442 (Version 1)
Quarter: 2024Q3

REPORT INFORMATION
  Report Type: Report from Study
  Country: JP (occurrence: JP)
  Receive Date: 20240904
  Receipt Date: 20240904
  Transmission Date: 20241017
  Serious: Yes (Other)
  Sender: JOHNSON AND JOHNSON
  Company Number: JP-JNJFOC-20240824227

PATIENT
  Age: 55 Year
  Sex: Female

DRUGS (6)
  1. SELEXIPAG [Suspect]
     Active Substance: SELEXIPAG
     Indication: Pulmonary hypertension
     Dosage: 0.4 MG (0.4 MG/24 HOURS)
     Route: 048
     Dates: start: 20230721, end: 20230726
  2. SELEXIPAG [Suspect]
     Active Substance: SELEXIPAG
     Dosage: 0.8 MG (0.8 MG/24 HOURS)
     Route: 048
     Dates: start: 20230726, end: 20230802
  3. SELEXIPAG [Suspect]
     Active Substance: SELEXIPAG
     Dosage: 1.2 MG (1.2 MG/24 HOURS)
     Route: 048
     Dates: start: 20230802, end: 20230809
  4. SELEXIPAG [Suspect]
     Active Substance: SELEXIPAG
     Dosage: 1.6 MG (1.6 MG/24 HOURS)
     Route: 048
     Dates: start: 20230816, end: 20230829
  5. SELEXIPAG [Suspect]
     Active Substance: SELEXIPAG
     Dosage: (1.6 MG/24 HOURS)
     Route: 048
     Dates: start: 20230809, end: 20230829
  6. SELEXIPAG [Suspect]
     Active Substance: SELEXIPAG
     Dosage: 0.8 MG (0.8 MG/24 HOURS)
     Route: 048
     Dates: start: 20230829

REACTIONS (2)
  - Left ventricular failure [Recovering/Resolving]
  - Oedema peripheral [Recovering/Resolving]

NARRATIVE: CASE EVENT DATE: 20230829
